FAERS Safety Report 22129738 (Version 1)
Quarter: 2023Q1

REPORT INFORMATION
  Report Type: Spontaneous
  Country: US (occurrence: None)
  Receive Date: 20230322
  Receipt Date: 20230322
  Transmission Date: 20230418
  Serious: No
  Sender: FDA-Public Use
  Company Number: None

PATIENT
  Age: 49 Year
  Sex: Female
  Weight: 94.5 kg

DRUGS (6)
  1. AJOVY [Suspect]
     Active Substance: FREMANEZUMAB-VFRM
     Indication: Migraine
     Dosage: FREQUENCY : MONTHLY;?OTHER ROUTE : INJECTION IN STOMACH;?
     Route: 050
     Dates: start: 20230202, end: 20230302
  2. MIRENA [Concomitant]
     Active Substance: LEVONORGESTREL
  3. ALLEGRA [Concomitant]
     Active Substance: FEXOFENADINE HYDROCHLORIDE
  4. PRILOSEC [Concomitant]
     Active Substance: OMEPRAZOLE MAGNESIUM
  5. BENADRYL [Concomitant]
     Active Substance: DIPHENHYDRAMINE HYDROCHLORIDE
  6. Cortizone Cream [Concomitant]

REACTIONS (11)
  - Throat tightness [None]
  - Chest discomfort [None]
  - Urticaria [None]
  - Palpitations [None]
  - Injection site discolouration [None]
  - Injection site swelling [None]
  - Rash [None]
  - Injection site pruritus [None]
  - Injection site erythema [None]
  - Anxiety [None]
  - Pruritus [None]

NARRATIVE: CASE EVENT DATE: 20230302
